FAERS Safety Report 5086095-3 (Version None)
Quarter: 2006Q3

REPORT INFORMATION
  Report Type: 
  Country: None (occurrence: None)
  Receive Date: 20060818
  Receipt Date: 20060802
  Transmission Date: 20061208
  Serious: Yes (Life-Threatening)
  Sender: FDA-Public Use
  Company Number: VER_0018_2006

PATIENT
  Age: 32 Year
  Sex: Male

DRUGS (1)
  1. TWINJECT [Suspect]
     Indication: ANAPHYLACTIC REACTION
     Dosage: 2 DF ONCE SC
     Route: 058
     Dates: start: 20060101, end: 20060101

REACTIONS (2)
  - DEVICE FAILURE [None]
  - PHARMACEUTICAL PRODUCT COMPLAINT [None]
